FAERS Safety Report 7689173-5 (Version None)
Quarter: 2011Q3

REPORT INFORMATION
  Report Type: 
  Country: None (occurrence: None)
  Receive Date: 20110811
  Receipt Date: 20110728
  Transmission Date: 20111222
  Serious: Yes (Other)
  Sender: FDA-Public Use
  Company Number: ABR_00205_2011

PATIENT
  Sex: Female

DRUGS (1)
  1. ERYTHROMYCIN [Suspect]
     Indication: BRONCHITIS
     Dosage: (3 DF, (3 DOSES) ORAL)
     Route: 048
     Dates: start: 19790101, end: 19790101

REACTIONS (5)
  - THROAT TIGHTNESS [None]
  - NAUSEA [None]
  - URTICARIA [None]
  - DRY MOUTH [None]
  - DYSPNOEA [None]
